FAERS Safety Report 25372088 (Version 2)
Quarter: 2025Q2

REPORT INFORMATION
  Report Type: Spontaneous
  Country: US (occurrence: US)
  Receive Date: 20250529
  Receipt Date: 20250616
  Transmission Date: 20250717
  Serious: Yes (Hospitalization, Other)
  Sender: NOVO NORDISK
  Company Number: US-NOVOPROD-1437135

PATIENT
  Age: 81 Year
  Sex: Female

DRUGS (3)
  1. NOVOLOG [Suspect]
     Active Substance: INSULIN ASPART
     Indication: Type 2 diabetes mellitus
     Route: 058
     Dates: start: 2005
  2. LANTUS [Concomitant]
     Active Substance: INSULIN GLARGINE
     Indication: Product used for unknown indication
  3. HUMALOG [Concomitant]
     Active Substance: INSULIN LISPRO
     Indication: Product used for unknown indication

REACTIONS (6)
  - Balance disorder [Unknown]
  - Lower limb fracture [Recovered/Resolved]
  - Cardiac pacemaker insertion [Unknown]
  - Stent placement [Unknown]
  - Walking aid user [Unknown]
  - Visual impairment [Unknown]

NARRATIVE: CASE EVENT DATE: 20110101
